FAERS Safety Report 8017491 (Version 2)
Quarter: 2013Q2

REPORT INFORMATION
  Report Type: Spontaneous
  Country: AU (occurrence: AU)
  Receive Date: 20110630
  Receipt Date: 20130618
  Transmission Date: 20140414
  Serious: Yes (Hospitalization, Other)
  Sender: FDA-Public Use
  Company Number: AU-PFIZER INC-2011143707

PATIENT
  Age: 49 Year
  Sex: Male

DRUGS (3)
  1. VALACICLOVIR HYDROCHLORIDE [Suspect]
     Dosage: 30 G
  2. VENLAFAXINE HCL [Suspect]
     Dosage: 4.2 G
  3. OLANZAPINE [Suspect]
     Dosage: 2.5 G

REACTIONS (3)
  - Overdose [Unknown]
  - Renal failure acute [Unknown]
  - Crystalluria [Unknown]
